FAERS Safety Report 7399073-6 (Version None)
Quarter: 2011Q2

REPORT INFORMATION
  Report Type: 
  Country: None (occurrence: None)
  Receive Date: 20110407
  Receipt Date: 20110127
  Transmission Date: 20111010
  Serious: No
  Sender: FDA-Public Use
  Company Number: JP-ASTRAZENECA-2011SE18126

PATIENT
  Age: 70 Year

DRUGS (1)
  1. MEROPEN [Suspect]
     Route: 042

REACTIONS (1)
  - CONVULSION [None]
